FAERS Safety Report 24583521 (Version 2)
Quarter: 2024Q4

REPORT INFORMATION
  Report Type: Report from Study
  Country: US (occurrence: US)
  Receive Date: 20241106
  Receipt Date: 20241111
  Transmission Date: 20250115
  Serious: Yes (Other)
  Sender: ABBVIE
  Company Number: US-ABBVIE-5987045

PATIENT
  Age: 53 Year
  Sex: Male

DRUGS (1)
  1. HUMIRA [Suspect]
     Active Substance: ADALIMUMAB
     Indication: Product used for unknown indication
     Dosage: CITRATE FREE
     Route: 058
     Dates: start: 20240825

REACTIONS (4)
  - Tooth impacted [Recovering/Resolving]
  - Blister [Unknown]
  - Peripheral swelling [Unknown]
  - Purulent discharge [Unknown]

NARRATIVE: CASE EVENT DATE: 20240101
